FAERS Safety Report 9013893 (Version 1)
Quarter: 2013Q1

REPORT INFORMATION
  Report Type: Spontaneous
  Country: US (occurrence: None)
  Receive Date: 20130109
  Receipt Date: 20130109
  Transmission Date: 20140127
  Serious: Yes (Other)
  Sender: FDA-Public Use
  Company Number: None

PATIENT
  Sex: Male
  Weight: 97.52 kg

DRUGS (1)
  1. CRESTOR [Suspect]
     Indication: BLOOD CHOLESTEROL INCREASED
     Dates: start: 20090401, end: 20110401

REACTIONS (6)
  - Myalgia [None]
  - Arthralgia [None]
  - Activities of daily living impaired [None]
  - Arthralgia [None]
  - Gait disturbance [None]
  - Chest pain [None]
